FAERS Safety Report 6877430-1 (Version None)
Quarter: 2010Q3

REPORT INFORMATION
  Report Type: 
  Country: None (occurrence: None)
  Receive Date: 20100727
  Receipt Date: 20100124
  Transmission Date: 20110219
  Serious: No
  Sender: FDA-Public Use
  Company Number: US-ABBOTT-10P-163-0622594-00

PATIENT
  Sex: Female
  Weight: 69.008 kg

DRUGS (6)
  1. SYNTHROID [Suspect]
     Indication: HYPOTHYROIDISM
     Route: 048
     Dates: start: 20080101, end: 20091001
  2. SYNTHROID [Suspect]
     Route: 048
     Dates: start: 20091001
  3. CLONIDINE [Suspect]
     Indication: HYPERTENSION
  4. CLONIDINE [Suspect]
  5. SINGULAIR [Concomitant]
     Indication: HYPERSENSITIVITY
  6. HYDROCHLOROTHIAZIDE [Concomitant]
     Indication: HYPERTENSION
     Dosage: UNKNOWN DOSE

REACTIONS (3)
  - HYPOAESTHESIA [None]
  - RESTLESSNESS [None]
  - VITAMIN B COMPLEX DEFICIENCY [None]
